FAERS Safety Report 8801523 (Version 3)
Quarter: 2013Q1

REPORT INFORMATION
  Report Type: Spontaneous
  Country: US (occurrence: US)
  Receive Date: 20120921
  Receipt Date: 20130318
  Transmission Date: 20140127
  Serious: Yes (Hospitalization)
  Sender: FDA-Public Use
  Company Number: US-BAYER-2012-097390

PATIENT
  Age: 31 Year
  Sex: Female
  Weight: 83.45 kg

DRUGS (9)
  1. OCELLA [Suspect]
     Indication: CONTRACEPTION
     Dosage: UNK
     Dates: start: 20081213, end: 20110113
  2. YAZ [Suspect]
     Indication: CONTRACEPTION
  3. YASMIN [Suspect]
     Indication: CONTRACEPTION
  4. ZARAH [Suspect]
  5. DROSPIRENONE W/ETHINYLESTRADIOL [Suspect]
     Indication: CONTRACEPTION
     Dosage: UNK
     Dates: start: 20110114, end: 20110131
  6. OMEPRAZOLE [Concomitant]
     Indication: DYSPEPSIA
     Dosage: 20 MG, DAILY
     Dates: start: 2006
  7. OMEPRAZOLE [Concomitant]
     Indication: DYSPEPSIA
     Dosage: 20 MG, DAILY
     Dates: start: 20100923, end: 20110816
  8. PHENDIMETRAZINE [Concomitant]
     Indication: WEIGHT DECREASED
     Dosage: UNK
     Dates: start: 2009
  9. PROTONIX [Concomitant]
     Indication: GASTROOESOPHAGEAL REFLUX DISEASE

REACTIONS (13)
  - Pelvic venous thrombosis [None]
  - Pulmonary embolism [None]
  - Dyspnoea [None]
  - Tachycardia [None]
  - Anxiety [None]
  - Stress [None]
  - Pain [None]
  - Injury [None]
  - Anxiety [None]
  - Anhedonia [None]
  - Fear [None]
  - Emotional distress [None]
  - Pain [None]
